FAERS Safety Report 10121361 (Version 1)
Quarter: 2014Q2

REPORT INFORMATION
  Report Type: Spontaneous
  Country: CO (occurrence: CO)
  Receive Date: 20140425
  Receipt Date: 20140425
  Transmission Date: 20141212
  Serious: Yes (Death)
  Sender: FDA-Public Use
  Company Number: CO-INCYTE CORPORATION-2014IN001059

PATIENT
  Age: 65 Year
  Sex: Female

DRUGS (2)
  1. JAKAVI [Suspect]
     Indication: MYELOFIBROSIS
     Dosage: 20 MG, BID
     Route: 048
     Dates: start: 20140214, end: 20140228
  2. PREDNISOLONA/PREDNISOLONE [Concomitant]
     Dosage: UNK
     Dates: start: 2013, end: 20140228

REACTIONS (1)
  - Death [Fatal]
